FAERS Safety Report 14753756 (Version 1)
Quarter: 2018Q2

REPORT INFORMATION
  Report Type: Spontaneous
  Country: CN (occurrence: CN)
  Receive Date: 20180412
  Receipt Date: 20180412
  Transmission Date: 20180711
  Serious: Yes (Death)
  Sender: FDA-Public Use
  Company Number: CN-PFIZER INC-2018144362

PATIENT
  Age: 4 Month
  Sex: Male

DRUGS (4)
  1. PREDNISONE. [Suspect]
     Active Substance: PREDNISONE
     Indication: KAPOSI^S SARCOMA
     Dosage: 3 MG/KG, DAILY FOR 4 WEEKS
     Dates: start: 2016, end: 2016
  2. PREDNISONE. [Suspect]
     Active Substance: PREDNISONE
     Indication: HAEMANGIOMA-THROMBOCYTOPENIA SYNDROME
  3. SIROLIMUS. [Suspect]
     Active Substance: SIROLIMUS
     Indication: HAEMANGIOMA-THROMBOCYTOPENIA SYNDROME
  4. SIROLIMUS. [Suspect]
     Active Substance: SIROLIMUS
     Indication: KAPOSI^S SARCOMA
     Dosage: 0.1 MG/KG, DAILY
     Dates: start: 2016, end: 2016

REACTIONS (3)
  - Pneumonia mycoplasmal [Fatal]
  - Product use in unapproved indication [Unknown]
  - Drug administered to patient of inappropriate age [Unknown]

NARRATIVE: CASE EVENT DATE: 2016
